FAERS Safety Report 25166015 (Version 1)
Quarter: 2025Q2

REPORT INFORMATION
  Report Type: Spontaneous
  Country: FR (occurrence: FR)
  Receive Date: 20250407
  Receipt Date: 20250407
  Transmission Date: 20250717
  Serious: Yes (Life-Threatening, Hospitalization)
  Sender: ACCORD
  Company Number: None

PATIENT
  Age: 0 Year
  Sex: Female
  Weight: 2.82 kg

DRUGS (8)
  1. FUROSEMIDE [Suspect]
     Active Substance: FUROSEMIDE
     Dates: start: 20231121, end: 20240119
  2. BISOPROLOL [Suspect]
     Active Substance: BISOPROLOL
     Dates: end: 20240119
  3. BETAMETHASONE [Concomitant]
     Active Substance: BETAMETHASONE
     Dosage: STRENGTH: 5.70 MG/ML
     Dates: start: 20240109, end: 20240110
  4. POTASSIUM CHLORIDE [Suspect]
     Active Substance: POTASSIUM CHLORIDE
     Dates: start: 20231121, end: 20240119
  5. PENICILLIN G BENZATHINE [Suspect]
     Active Substance: PENICILLIN G BENZATHINE
     Dosage: STRENGTH:  2.4 M IU., POWDER AND SOLVENT FOR SUSPENSION FOR INJECTION (IM), DOSAGE 2.4
     Dates: end: 20240119
  6. LOVENOX [Suspect]
     Active Substance: ENOXAPARIN SODIUM
     Dosage: STRENGTH: 6000 IU ANTI-XA/0.6 ML, SOLUTION FOR INJECTION (S.C.) IN PRE-FILLED?SYRINGE
     Dates: start: 202308, end: 20240119
  7. FLUINDIONE [Suspect]
     Active Substance: FLUINDIONE
     Dates: end: 202308
  8. PRIMPERAN [Concomitant]
     Active Substance: METOCLOPRAMIDE HYDROCHLORIDE
     Dosage: 10 MG X 3/DAY
     Dates: start: 20230814

REACTIONS (6)
  - Maternal exposure during pregnancy [Recovered/Resolved]
  - Foetal growth restriction [Recovered/Resolved]
  - Premature baby [Recovered/Resolved]
  - Neonatal respiratory depression [Recovered/Resolved]
  - Neonatal gastrointestinal disorder [Recovered/Resolved]
  - Hospitalisation [Recovered/Resolved]

NARRATIVE: CASE EVENT DATE: 20240119
